FAERS Safety Report 11816094 (Version 1)
Quarter: 2015Q4

REPORT INFORMATION
  Report Type: Spontaneous
  Country: US (occurrence: US)
  Receive Date: 20151209
  Receipt Date: 20151209
  Transmission Date: 20160305
  Serious: Yes (Life-Threatening)
  Sender: FDA-Public Use
  Company Number: US-ALK ABELLO INC-1045276

PATIENT
  Age: 35 Year
  Sex: Female

DRUGS (4)
  1. ZOMIG [Concomitant]
     Active Substance: ZOLMITRIPTAN
  2. ALLERGENS EXTRACT NOS [Suspect]
     Active Substance: ALLERGENIC EXTRACTS
  3. DIGESTIVE ENZYMES [Concomitant]
     Active Substance: UNSPECIFIED INGREDIENT
     Route: 048
  4. ZYRTEC [Concomitant]
     Active Substance: CETIRIZINE HYDROCHLORIDE
     Route: 048

REACTIONS (3)
  - Dyspnoea [Recovered/Resolved]
  - Anaphylactic reaction [None]
  - Urticaria [Recovered/Resolved]
